FAERS Safety Report 20512709 (Version 1)
Quarter: 2022Q1

REPORT INFORMATION
  Report Type: Spontaneous
  Country: US (occurrence: None)
  Receive Date: 20220224
  Receipt Date: 20220224
  Transmission Date: 20220423
  Serious: Yes (Hospitalization)
  Sender: FDA-Public Use
  Company Number: None

PATIENT
  Age: 77 Year
  Sex: Female

DRUGS (3)
  1. HUMIRA [Suspect]
     Active Substance: ADALIMUMAB
     Indication: Uveitis
     Dosage: OTHER FREQUENCY : N/A;?
     Route: 058
  2. Ursodiol Lisinopril [Concomitant]
  3. Atorvastatln [Concomitant]

REACTIONS (1)
  - Gait inability [None]

NARRATIVE: CASE EVENT DATE: 20211028
